FAERS Safety Report 22175957 (Version 1)
Quarter: 2023Q2

REPORT INFORMATION
  Report Type: Spontaneous
  Country: US (occurrence: None)
  Receive Date: 20230404
  Receipt Date: 20230404
  Transmission Date: 20230721
  Serious: Yes (Other)
  Sender: FDA-Public Use
  Company Number: None

PATIENT
  Age: 76 Year
  Sex: Female
  Weight: 65.25 kg

DRUGS (1)
  1. CLENPIQ [Suspect]
     Active Substance: ANHYDROUS CITRIC ACID\MAGNESIUM OXIDE\SODIUM PICOSULFATE
     Indication: Bowel preparation
     Route: 048
     Dates: start: 20230403, end: 20230403

REACTIONS (3)
  - Pain [None]
  - Muscle spasms [None]
  - Product use complaint [None]

NARRATIVE: CASE EVENT DATE: 20230404
